FAERS Safety Report 8623137-X (Version None)
Quarter: 2012Q3

REPORT INFORMATION
  Report Type: 
  Country: None (occurrence: None)
  Receive Date: 20120827
  Receipt Date: 20120820
  Transmission Date: 20120928
  Serious: Yes (Hospitalization)
  Sender: FDA-Public Use
  Company Number: US-JNJFOC-20120810125

PATIENT
  Age: 84 Year
  Sex: Male
  Weight: 80.74 kg

DRUGS (2)
  1. UNKNOWN MEDICATION [Concomitant]
     Route: 065
  2. NEOSPORIN [Suspect]
     Indication: SCRATCH
     Route: 061

REACTIONS (1)
  - APPLICATION SITE REACTION [None]
